FAERS Safety Report 7933626-9 (Version None)
Quarter: 2011Q4

REPORT INFORMATION
  Report Type: 
  Country: None (occurrence: None)
  Receive Date: 20111122
  Receipt Date: 20111110
  Transmission Date: 20120403
  Serious: Yes (Hospitalization, Other)
  Sender: FDA-Public Use
  Company Number: PHHY2010CA58351

PATIENT
  Sex: Female

DRUGS (5)
  1. CLONIDINE [Concomitant]
     Dosage: 0.2 MG, QD
  2. ANTIBIOTICS [Concomitant]
     Route: 042
  3. SANDOSTATIN LAR [Suspect]
     Indication: DIARRHOEA
     Dosage: 20 MG EVERY 4 WEEKS
     Route: 030
     Dates: start: 20100607
  4. SANDOSTATIN LAR [Suspect]
     Dosage: 20 MG EVERY 4 WEEKS
     Route: 030
     Dates: end: 20101026
  5. SANDOSTATIN LAR [Suspect]
     Dosage: 20 MG, ONCE A MONTH
     Route: 030
     Dates: start: 20100712

REACTIONS (9)
  - DIARRHOEA [None]
  - STAPHYLOCOCCAL INFECTION [None]
  - MENSTRUAL DISORDER [None]
  - SUBCLAVIAN VEIN THROMBOSIS [None]
  - PAIN IN EXTREMITY [None]
  - HOT FLUSH [None]
  - BLOOD PRESSURE DECREASED [None]
  - RENAL FAILURE [None]
  - SEPSIS [None]
